FAERS Safety Report 22294190 (Version 1)
Quarter: 2023Q2

REPORT INFORMATION
  Report Type: Spontaneous
  Country: FR (occurrence: FR)
  Receive Date: 20230508
  Receipt Date: 20230508
  Transmission Date: 20230722
  Serious: Yes (Hospitalization)
  Sender: FDA-Public Use
  Company Number: None

PATIENT
  Age: 86 Year
  Sex: Female
  Weight: 68 kg

DRUGS (2)
  1. AMIODARONE [Interacting]
     Active Substance: AMIODARONE
     Indication: Product used for unknown indication
     Dosage: 1 MILLIGRAM DAILY; 0.5 MG MORNING AND EVENING
     Dates: start: 20230216, end: 20230223
  2. DIGOXIN [Interacting]
     Active Substance: DIGOXIN
     Indication: Product used for unknown indication
     Dosage: 1 MILLIGRAM DAILY; 0.5 MG MORNING AND EVENING
     Dates: start: 20230216, end: 20230223

REACTIONS (2)
  - Atrioventricular block first degree [Recovering/Resolving]
  - Drug interaction [Recovering/Resolving]

NARRATIVE: CASE EVENT DATE: 20230223
